FAERS Safety Report 9312101 (Version 4)
Quarter: 2013Q3

REPORT INFORMATION
  Report Type: Spontaneous
  Country: US (occurrence: US)
  Receive Date: 20130528
  Receipt Date: 20130814
  Transmission Date: 20140515
  Serious: Yes (Death, Other)
  Sender: FDA-Public Use
  Company Number: US-JNJFOC-20130515768

PATIENT
  Age: 62 Year
  Sex: Female
  Weight: 56.25 kg

DRUGS (8)
  1. REMICADE [Suspect]
     Indication: CROHN^S DISEASE
     Route: 042
     Dates: start: 20041103, end: 20130523
  2. AZATHIOPRINE [Suspect]
     Indication: CROHN^S DISEASE
     Route: 048
     Dates: start: 20041013
  3. ATIVAN [Concomitant]
     Indication: ANXIETY
     Dosage: WHEN REQUIRED
     Route: 048
     Dates: start: 20060406
  4. CELEXA [Concomitant]
     Indication: DEPRESSION
     Route: 048
     Dates: start: 20120401
  5. VITAMIN D [Concomitant]
     Route: 048
     Dates: start: 20120401
  6. TRAZODONE [Concomitant]
     Route: 048
     Dates: start: 20060701
  7. FLORINEF [Concomitant]
     Route: 048
     Dates: start: 1996
  8. PERCOCET [Concomitant]
     Route: 048
     Dates: start: 2004

REACTIONS (1)
  - Non-small cell lung cancer stage IV [Fatal]
